FAERS Safety Report 13296869 (Version 3)
Quarter: 2017Q1

REPORT INFORMATION
  Report Type: Report from Study
  Country: CA (occurrence: CA)
  Receive Date: 20170306
  Receipt Date: 20170309
  Transmission Date: 20170428
  Serious: Yes (Hospitalization)
  Sender: FDA-Public Use
  Company Number: CA-BEH-2017078446

PATIENT
  Age: 60 Year
  Sex: Male

DRUGS (2)
  1. HIZENTRA [Suspect]
     Active Substance: HUMAN IMMUNOGLOBULIN G
     Indication: SECONDARY IMMUNODEFICIENCY
     Dosage: 16 G, QOW
     Route: 058
  2. HIZENTRA [Suspect]
     Active Substance: HUMAN IMMUNOGLOBULIN G
     Indication: LUNG TRANSPLANT

REACTIONS (5)
  - Dyspnoea [Unknown]
  - Lower respiratory tract infection viral [Recovered/Resolved]
  - Bacterial pericarditis [Not Recovered/Not Resolved]
  - Lung transplant [Unknown]
  - Fatigue [Unknown]

NARRATIVE: CASE EVENT DATE: 201610
